FAERS Safety Report 4455948-9 (Version None)
Quarter: 2004Q3

REPORT INFORMATION
  Report Type: 
  Country: None (occurrence: None)
  Receive Date: 20040922
  Receipt Date: 20030224
  Transmission Date: 20050211
  Serious: Yes (Hospitalization)
  Sender: FDA-Public Use
  Company Number: DEPFP-S-20030004

PATIENT
  Age: 73 Year
  Sex: Female

DRUGS (9)
  1. NAVELBINE [Suspect]
     Indication: NON-SMALL CELL LUNG CANCER
     Dosage: 30MG PER DAY
     Route: 042
     Dates: start: 20020531, end: 20021105
  2. GEMCITABINE [Concomitant]
     Indication: NON-SMALL CELL LUNG CANCER
     Route: 065
     Dates: start: 20020531, end: 20021105
  3. CISPLATIN [Concomitant]
     Indication: NON-SMALL CELL LUNG CANCER
     Route: 065
     Dates: start: 20020531, end: 20021105
  4. PANTOPRAZOLE SODIUM [Concomitant]
  5. BIFITERAL [Concomitant]
  6. KALITRANS [Concomitant]
  7. DURAGESIC [Concomitant]
  8. VIOXX [Concomitant]
     Dates: start: 20021001, end: 20021201
  9. NOVALGIN [Concomitant]
     Dates: start: 20020701

REACTIONS (7)
  - ANAEMIA [None]
  - BACK PAIN [None]
  - MALIGNANT NEOPLASM PROGRESSION [None]
  - NAUSEA [None]
  - NEUTROPENIA [None]
  - SPINAL FRACTURE [None]
  - VOMITING [None]
